FAERS Safety Report 24566122 (Version 2)
Quarter: 2024Q4

REPORT INFORMATION
  Report Type: Spontaneous
  Country: US (occurrence: US)
  Receive Date: 20241030
  Receipt Date: 20241127
  Transmission Date: 20250114
  Serious: Yes (Hospitalization)
  Sender: TEVA
  Company Number: US-TEVA-VS-3258702

PATIENT
  Age: 30 Year
  Sex: Female

DRUGS (1)
  1. TRIAMCINOLONE [Suspect]
     Active Substance: TRIAMCINOLONE
     Indication: Immunoglobulin G4 related disease
     Dosage: 2ML OF 40MG/ML
     Route: 026

REACTIONS (1)
  - Retinal artery occlusion [Recovering/Resolving]
